FAERS Safety Report 4695051-6 (Version None)
Quarter: 2005Q2

REPORT INFORMATION
  Report Type: 
  Country: None (occurrence: None)
  Receive Date: 20050617
  Receipt Date: 20050606
  Transmission Date: 20051028
  Serious: Yes (Hospitalization)
  Sender: FDA-Public Use
  Company Number: 081-9033-M0100001

PATIENT
  Age: 74 Year
  Sex: Male

DRUGS (12)
  1. NORVASC [Suspect]
     Indication: HYPERTENSION
     Dosage: 5 MG (DAILY), ORAL
     Route: 048
     Dates: start: 20001101
  2. DILTIAZEM HYDROCHLORIDE [Suspect]
     Indication: ANGINA PECTORIS
     Dosage: 200 MG (DAILY), ORAL
     Route: 048
     Dates: start: 20001024, end: 20010308
  3. CARVEDILOL [Suspect]
     Indication: ANGINA PECTORIS
     Dosage: 10 MG (DAILY), ORAL
     Route: 048
     Dates: start: 20001101, end: 20010308
  4. SIGMART (NICORANDIL) [Suspect]
     Indication: ANGINA PECTORIS
     Dosage: 15 MG (DAILY), ORAL
     Route: 048
     Dates: start: 20001024
  5. ASPIRIN [Suspect]
     Indication: ANGINA PECTORIS
     Dosage: 100 MG (DAILY), ORAL
     Route: 048
     Dates: start: 20010220
  6. FLUOROURACIL [Suspect]
     Indication: COLON CANCER
     Dosage: 500 MG (DAILY), INTRAVENOUS
     Route: 042
     Dates: start: 20000719, end: 20010306
  7. CISPLATIN [Suspect]
     Indication: COLON CANCER
     Dosage: 10 MG (DAILY), INTRAVENOUS
     Route: 042
     Dates: start: 20000718, end: 20010306
  8. GRANISETRON  HCL [Suspect]
     Indication: COLON CANCER
     Dosage: 3 MG (DAILY), INTRAVENOUS
     Route: 042
     Dates: start: 20000718, end: 20010306
  9. CIPROFLOXACIN [Suspect]
     Indication: ILL-DEFINED DISORDER
     Dates: start: 20001101
  10. ISOSORBIDE MONONITRATE [Concomitant]
  11. FAMOTIDINE [Concomitant]
  12. PLAUNOTOL (PLAUNOTOL) [Concomitant]

REACTIONS (6)
  - ATRIOVENTRICULAR BLOCK COMPLETE [None]
  - BLOOD PRESSURE DECREASED [None]
  - BRADYCARDIA [None]
  - DIZZINESS [None]
  - MALAISE [None]
  - RENAL IMPAIRMENT [None]
